FAERS Safety Report 9254918 (Version 5)
Quarter: 2013Q4

REPORT INFORMATION
  Report Type: Spontaneous
  Country: GB (occurrence: None)
  Receive Date: 20130422
  Receipt Date: 20131125
  Transmission Date: 20140711
  Serious: Yes (Disabling, Other)
  Sender: FDA-Public Use
  Company Number: AUR-APL-2013-03128

PATIENT
  Age: 64 Year
  Sex: Male
  Weight: 86 kg

DRUGS (5)
  1. FINASTERIDE [Suspect]
     Indication: PRODUCT USED FOR UNKNOWN INDICATION
     Dosage: 150 MG (50 MG, 3 IN 1 D), UNKNOWN
     Dates: start: 20130130
  2. DICLOFENAC SODIUM [Suspect]
     Indication: PRODUCT USED FOR UNKNOWN INDICATION
     Dosage: 150 MG (50 MG, 3 IN 1 D)
     Dates: start: 20121220
  3. DUTASTERIDE (DUTASTERIDE) [Concomitant]
  4. OMEPRAZOLE (OMEPRAZOLE) [Concomitant]
  5. PROCHLORPERAZINE (PROCHLORPERAZINE) [Concomitant]

REACTIONS (4)
  - Back pain [None]
  - Condition aggravated [None]
  - Drug interaction [None]
  - Back pain [None]
